FAERS Safety Report 16923386 (Version 1)
Quarter: 2019Q4

REPORT INFORMATION
  Report Type: Spontaneous
  Country: ZA (occurrence: ZA)
  Receive Date: 20191016
  Receipt Date: 20191016
  Transmission Date: 20200122
  Serious: Yes (Hospitalization)
  Sender: FDA-Public Use
  Company Number: ZA-AMGEN-ZAFSP2019170251

PATIENT
  Age: 68 Year
  Sex: Female
  Weight: 50 kg

DRUGS (3)
  1. ENBREL [Suspect]
     Active Substance: ETANERCEPT
     Indication: RHEUMATOID ARTHRITIS
     Dosage: 50 MILLIGRAM, QWK
     Route: 065
     Dates: start: 20190403
  2. RHEUMALEF [Concomitant]
     Active Substance: LEFLUNOMIDE
  3. METHOTREXATE. [Concomitant]
     Active Substance: METHOTREXATE
     Dosage: 10 MILLIGRAM, QWK

REACTIONS (6)
  - Osteoarthritis [Unknown]
  - Diarrhoea [Recovered/Resolved]
  - Back pain [Unknown]
  - Fall [Unknown]
  - Nausea [Recovering/Resolving]
  - Spinal disorder [Unknown]

NARRATIVE: CASE EVENT DATE: 2018
